FAERS Safety Report 5021453-4 (Version None)
Quarter: 2006Q2

REPORT INFORMATION
  Report Type: 
  Country: None (occurrence: None)
  Receive Date: 20060608
  Receipt Date: 20060530
  Transmission Date: 20061013
  Serious: Yes (Life-Threatening)
  Sender: FDA-Public Use
  Company Number: FR-BRISTOL-MYERS SQUIBB COMPANY-13394804

PATIENT
  Age: 78 Year
  Sex: Male
  Weight: 79 kg

DRUGS (7)
  1. HYDREA [Suspect]
     Indication: CHRONIC MYELOID LEUKAEMIA
     Route: 048
     Dates: start: 20040423, end: 20040523
  2. GLEEVEC [Suspect]
     Indication: CHRONIC MYELOID LEUKAEMIA
     Dates: start: 20011208
  3. LIPANTHYL [Concomitant]
     Indication: HYPERCHOLESTEROLAEMIA
     Dates: start: 19770101
  4. SERMION [Concomitant]
     Dates: start: 19960101
  5. GRANOCYTE [Concomitant]
     Dates: start: 20040603
  6. EPREX [Concomitant]
     Dates: start: 20040603
  7. ARANESP [Concomitant]
     Dates: start: 20040603

REACTIONS (2)
  - LEUKOCYTOSIS [None]
  - METASTASIS [None]
